FAERS Safety Report 5793689-6 (Version None)
Quarter: 2008Q2

REPORT INFORMATION
  Report Type: 
  Country: None (occurrence: None)
  Receive Date: 20080627
  Receipt Date: 20080620
  Transmission Date: 20081010
  Serious: Yes (Death)
  Sender: FDA-Public Use
  Company Number: JP-AMGEN-US280419

PATIENT
  Sex: Female

DRUGS (8)
  1. ENBREL [Suspect]
     Indication: RHEUMATOID ARTHRITIS
     Dosage: UNKNOWN
     Route: 058
     Dates: start: 20071017
  2. SULFASALAZINE [Concomitant]
     Route: 048
     Dates: start: 20080328
  3. LANSOPRAZOLE [Concomitant]
     Indication: PROPHYLAXIS AGAINST GASTROINTESTINAL ULCER
     Route: 065
     Dates: start: 20070126
  4. NORVASC [Concomitant]
     Indication: HYPERTENSION
     Route: 048
     Dates: start: 20070126
  5. PROGRAF [Concomitant]
     Indication: RHEUMATOID ARTHRITIS
     Route: 048
     Dates: start: 20070126
  6. PROGRAF [Concomitant]
     Route: 048
     Dates: start: 20070328
  7. PROGRAF [Concomitant]
     Dates: start: 20071017
  8. HYPEN [Concomitant]
     Indication: RHEUMATOID ARTHRITIS
     Route: 048
     Dates: start: 20070126

REACTIONS (1)
  - COMPLETED SUICIDE [None]
